FAERS Safety Report 9392839 (Version 3)
Quarter: 2013Q4

REPORT INFORMATION
  Report Type: Spontaneous
  Country: GB (occurrence: GB)
  Receive Date: 20130710
  Receipt Date: 20131029
  Transmission Date: 20140711
  Serious: Yes (Death, Other)
  Sender: FDA-Public Use
  Company Number: GB-B.I. PHARMACEUTICALS,INC./RIDGEFIELD-2013-UK-01368UK

PATIENT
  Age: 81 Year
  Sex: Male
  Weight: 82.5 kg

DRUGS (8)
  1. SPIRIVA [Suspect]
     Indication: CHRONIC OBSTRUCTIVE PULMONARY DISEASE
     Dosage: 1 ANZ
     Route: 055
     Dates: start: 20130613, end: 20130619
  2. BENDROFLUMETHIAZIDE [Concomitant]
     Dosage: 2.5 MG
  3. BIMATOPROST [Concomitant]
     Dosage: DOSE: 1GTT
  4. BRIMONIDINE TARTRATE [Concomitant]
     Dosage: STRENGHT 0.2%
  5. DORZOLAMIDE HYDROCHLORIDE [Concomitant]
     Dosage: ROUTE: OPHTHALMIC 1GTT, 2%
  6. FELODIPINE [Concomitant]
     Dosage: 5 MG
  7. FOSTAIR [Concomitant]
     Dosage: DOSE: 2DF
     Route: 055
     Dates: start: 20130517
  8. SALBUTAMOL [Concomitant]
     Route: 055

REACTIONS (2)
  - Cardiopulmonary failure [Fatal]
  - Hypertensive heart disease [Not Recovered/Not Resolved]
